FAERS Safety Report 10081466 (Version 1)
Quarter: 2014Q2

REPORT INFORMATION
  Report Type: Spontaneous
  Country: GR (occurrence: GR)
  Receive Date: 20140416
  Receipt Date: 20140416
  Transmission Date: 20141212
  Serious: Yes (Death)
  Sender: FDA-Public Use
  Company Number: GR-ACTELION-A-CH2014-97237

PATIENT
  Age: 58 Year
  Sex: Male
  Weight: 82 kg

DRUGS (3)
  1. VELETRI [Suspect]
     Indication: PULMONARY HYPERTENSION
     Dosage: 2 NG/KG, PER MIN
     Route: 042
     Dates: end: 20140329
  2. FUROSEMIDE [Concomitant]
     Dosage: UNK
     Dates: start: 20140318
  3. DOBUTAMINE [Concomitant]
     Dosage: UNK
     Dates: start: 20140318

REACTIONS (3)
  - Cardiac arrest [Fatal]
  - Right ventricular failure [Fatal]
  - Multi-organ failure [Fatal]
